FAERS Safety Report 4356803-5 (Version None)
Quarter: 2004Q2

REPORT INFORMATION
  Report Type: 
  Country: None (occurrence: None)
  Receive Date: 20040507
  Receipt Date: 20040430
  Transmission Date: 20050107
  Serious: Yes (Life-Threatening, Other)
  Sender: FDA-Public Use
  Company Number: 2004-02-1738

PATIENT
  Age: 49 Year
  Sex: Female
  Weight: 85 kg

DRUGS (4)
  1. VIRAFERONPEG [Suspect]
     Indication: HEPATITIS C
     Dosage: 150 MCG QWK SUBCUTANEOUS
     Route: 058
     Dates: start: 20030402, end: 20031205
  2. REBETOL [Suspect]
     Indication: HEPATITIS C
     Dosage: 1200 MG QD
     Dates: start: 20030402, end: 20031205
  3. ZOLPIDEM TARTRATE [Concomitant]
  4. PARACETAMOL PRE/POST INJ. [Concomitant]

REACTIONS (4)
  - DYSPNOEA [None]
  - PERICARDITIS [None]
  - POISONING [None]
  - SARCOIDOSIS [None]
